FAERS Safety Report 5856358-X (Version None)
Quarter: 2008Q3

REPORT INFORMATION
  Report Type: 
  Country: None (occurrence: None)
  Receive Date: 20080825
  Receipt Date: 20080814
  Transmission Date: 20090109
  Serious: Yes (Other)
  Sender: FDA-Public Use
  Company Number: IN-BRISTOL-MYERS SQUIBB COMPANY-14303739

PATIENT
  Age: 44 Year
  Sex: Female

DRUGS (2)
  1. CYCLOPHOSPHAMIDE [Suspect]
     Indication: BREAST CANCER
     Dosage: 1 DOSAGE FORM = 1056(UNITS NOT SPECIFIED)
     Route: 042
     Dates: start: 20080627, end: 20080627
  2. DOXORUBICIN HCL [Suspect]
     Indication: BREAST CANCER
     Dosage: 1 DOSAGE FORM = 106(UNITS NOT SPECIFIED)
     Route: 042
     Dates: start: 20080627, end: 20080627

REACTIONS (1)
  - NEUTROPENIA [None]
